FAERS Safety Report 16548473 (Version 1)
Quarter: 2019Q3

REPORT INFORMATION
  Report Type: Spontaneous
  Country: US (occurrence: US)
  Receive Date: 20190709
  Receipt Date: 20190709
  Transmission Date: 20191004
  Serious: No
  Sender: FDA-Public Use
  Company Number: US-TEVA-2019-US-1065242

PATIENT
  Sex: Female
  Weight: 82 kg

DRUGS (1)
  1. QVAR REDIHALER [Suspect]
     Active Substance: BECLOMETHASONE DIPROPIONATE
     Indication: ASTHMA
     Route: 065

REACTIONS (7)
  - Chest pain [Unknown]
  - Product storage error [Unknown]
  - Product dispensing error [Unknown]
  - Dyspnoea [Unknown]
  - Product substitution issue [Unknown]
  - Inability to afford medication [Unknown]
  - Prescription drug used without a prescription [Unknown]
